FAERS Safety Report 16531805 (Version 1)
Quarter: 2019Q3

REPORT INFORMATION
  Report Type: Spontaneous
  Country: US (occurrence: US)
  Receive Date: 20190703
  Receipt Date: 20190703
  Transmission Date: 20191004
  Serious: Yes (Disabling, Other)
  Sender: FDA-Public Use
  Company Number: None

PATIENT
  Age: 51 Year
  Sex: Female
  Weight: 63 kg

DRUGS (1)
  1. DULOXETINE. [Suspect]
     Active Substance: DULOXETINE
     Indication: DEPRESSION
     Dosage: ?          QUANTITY:1 CAPSULE(S);?
     Route: 048
     Dates: start: 20180801, end: 20190620

REACTIONS (10)
  - Insomnia [None]
  - Fatigue [None]
  - Dizziness [None]
  - Crying [None]
  - Feelings of worthlessness [None]
  - Hyperhidrosis [None]
  - Irritability [None]
  - Condition aggravated [None]
  - Suicidal ideation [None]
  - Tremor [None]

NARRATIVE: CASE EVENT DATE: 20190630
